FAERS Safety Report 8084587-6 (Version None)
Quarter: 2012Q1

REPORT INFORMATION
  Report Type: 
  Country: None (occurrence: None)
  Receive Date: 20120128
  Receipt Date: 20110310
  Transmission Date: 20120608
  Serious: No
  Sender: FDA-Public Use
  Company Number: US-ABBOTT-11P-163-0712115-00

PATIENT
  Sex: Male
  Weight: 86.26 kg

DRUGS (2)
  1. HUMIRA [Suspect]
     Route: 058
     Dates: start: 20110301
  2. HUMIRA [Suspect]
     Indication: ANKYLOSING SPONDYLITIS
     Route: 058
     Dates: start: 20101001, end: 20110301

REACTIONS (7)
  - LIP BLISTER [None]
  - DRUG INEFFECTIVE [None]
  - BRONCHITIS [None]
  - LIP INFECTION [None]
  - EAR PAIN [None]
  - PAIN IN EXTREMITY [None]
  - PHARYNGITIS [None]
